FAERS Safety Report 5999693-7 (Version None)
Quarter: 2008Q4

REPORT INFORMATION
  Report Type: 
  Country: None (occurrence: None)
  Receive Date: 20081215
  Receipt Date: 20081202
  Transmission Date: 20090506
  Serious: Yes (Other)
  Sender: FDA-Public Use
  Company Number: IL-NOVOPROD-282306

PATIENT

DRUGS (1)
  1. NOVORAPID [Suspect]
     Indication: TYPE 1 DIABETES MELLITUS
     Dosage: DELIVERED BY CONTINUOUS SUBCUTANEOUS INSULIN INFUSION PUMP
     Route: 064

REACTIONS (1)
  - VENTRICULAR SEPTAL DEFECT [None]
